FAERS Safety Report 7752635-6 (Version None)
Quarter: 2011Q3

REPORT INFORMATION
  Report Type: 
  Country: None (occurrence: None)
  Receive Date: 20110915
  Receipt Date: 20110908
  Transmission Date: 20111222
  Serious: Yes (Other)
  Sender: FDA-Public Use
  Company Number: GR-ROCHE-727838

PATIENT
  Age: 63 Year
  Sex: Female

DRUGS (1)
  1. AVASTIN [Suspect]
     Route: 042
     Dates: start: 20090803, end: 20100617

REACTIONS (2)
  - GALLBLADDER PERFORATION [None]
  - CHOLECYSTITIS [None]
